FAERS Safety Report 21548118 (Version 4)
Quarter: 2023Q1

REPORT INFORMATION
  Report Type: Spontaneous
  Country: US (occurrence: US)
  Receive Date: 20221103
  Receipt Date: 20230330
  Transmission Date: 20230417
  Serious: No
  Sender: FDA-Public Use
  Company Number: US-BRISTOL-MYERS SQUIBB COMPANY-2022-131589

PATIENT
  Age: 73 Year
  Sex: Male

DRUGS (1)
  1. REVLIMID [Suspect]
     Active Substance: LENALIDOMIDE
     Indication: Product used for unknown indication
     Dosage: FREQ: DAILY
     Route: 048
     Dates: start: 20220511

REACTIONS (9)
  - Fatigue [Unknown]
  - Asthenia [Unknown]
  - Insomnia [Unknown]
  - Restlessness [Unknown]
  - Feeling of body temperature change [Unknown]
  - Product dose omission issue [Unknown]
  - Mood altered [Unknown]
  - Temperature intolerance [Unknown]
  - Night sweats [Unknown]

NARRATIVE: CASE EVENT DATE: 20220512
